FAERS Safety Report 17221487 (Version 1)
Quarter: 2020Q1

REPORT INFORMATION
  Report Type: Spontaneous
  Country: CA (occurrence: CA)
  Receive Date: 20200101
  Receipt Date: 20200101
  Transmission Date: 20200409
  Serious: Yes (Other)
  Sender: FDA-Public Use
  Company Number: CA-AUROBINDO-AUR-APL-2019-107471

PATIENT
  Age: 29 Year
  Sex: Female

DRUGS (8)
  1. METRONIDAZOLE. [Suspect]
     Active Substance: METRONIDAZOLE
     Indication: LIVER ABSCESS
     Dosage: UNK
     Route: 065
  2. METRONIDAZOLE. [Suspect]
     Active Substance: METRONIDAZOLE
     Indication: HEPATIC AMOEBIASIS
  3. MEROPENEM INJECTION [Suspect]
     Active Substance: MEROPENEM
     Indication: EVIDENCE BASED TREATMENT
  4. MEROPENEM INJECTION [Suspect]
     Active Substance: MEROPENEM
     Indication: HEPATIC AMOEBIASIS
  5. METRONIDAZOLE. [Suspect]
     Active Substance: METRONIDAZOLE
     Indication: EVIDENCE BASED TREATMENT
  6. MEROPENEM INJECTION [Suspect]
     Active Substance: MEROPENEM
     Indication: LIVER ABSCESS
     Dosage: UNK
     Route: 065
  7. METRONIDAZOLE. [Suspect]
     Active Substance: METRONIDAZOLE
     Indication: ABSCESS BACTERIAL
  8. MEROPENEM INJECTION [Suspect]
     Active Substance: MEROPENEM
     Indication: ABSCESS BACTERIAL

REACTIONS (1)
  - Clostridium difficile colitis [Recovered/Resolved]
